FAERS Safety Report 6858057-4 (Version None)
Quarter: 2010Q3

REPORT INFORMATION
  Report Type: 
  Country: None (occurrence: None)
  Receive Date: 20100719
  Receipt Date: 20080424
  Transmission Date: 20110219
  Serious: Yes (Other)
  Sender: FDA-Public Use
  Company Number: US-PFIZER INC-2008009832

PATIENT
  Sex: Female
  Weight: 93.636 kg

DRUGS (3)
  1. CHANTIX [Suspect]
     Indication: SMOKING CESSATION THERAPY
     Route: 048
     Dates: start: 20071101
  2. LEVOXYL [Concomitant]
     Indication: HYPOTHYROIDISM
  3. LOPID [Concomitant]
     Indication: HYPERTRIGLYCERIDAEMIA
     Dates: start: 20060906

REACTIONS (2)
  - INSOMNIA [None]
  - WEIGHT INCREASED [None]
